FAERS Safety Report 25056427 (Version 1)
Quarter: 2025Q1

REPORT INFORMATION
  Report Type: Spontaneous
  Country: ES (occurrence: ES)
  Receive Date: 20250310
  Receipt Date: 20250310
  Transmission Date: 20250409
  Serious: Yes (Other)
  Sender: ABBVIE
  Company Number: None

PATIENT
  Age: 54 Year
  Sex: Male
  Weight: 64 kg

DRUGS (1)
  1. SILODOSIN [Suspect]
     Active Substance: SILODOSIN
     Indication: Prostatic disorder
     Route: 048
     Dates: start: 20211216, end: 20220325

REACTIONS (2)
  - Erectile dysfunction [Recovering/Resolving]
  - Ejaculation failure [Recovering/Resolving]

NARRATIVE: CASE EVENT DATE: 20220225
